FAERS Safety Report 4416149-3 (Version None)
Quarter: 2004Q3

REPORT INFORMATION
  Report Type: 
  Country: None (occurrence: None)
  Receive Date: 20040730
  Receipt Date: 20040719
  Transmission Date: 20050211
  Serious: Yes (Death)
  Sender: FDA-Public Use
  Company Number: S04-BEL-03332-01

PATIENT
  Age: 77 Year
  Sex: Female

DRUGS (4)
  1. MEMANTINE HCL [Suspect]
     Indication: DEMENTIA ALZHEIMER'S TYPE
     Dates: start: 20030201, end: 20030801
  2. ARICEPT [Suspect]
     Indication: DEMENTIA ALZHEIMER'S TYPE
     Dosage: 5 MG QD PO
     Route: 048
     Dates: start: 20010601, end: 20030801
  3. ZYPREXA [Suspect]
     Indication: AGITATION
     Dosage: 2 MG PRN PO
     Route: 048
     Dates: end: 20030801
  4. VITAMIN E [Suspect]
     Indication: DEMENTIA ALZHEIMER'S TYPE
     Dosage: 2000 IU QD
     Dates: start: 20010601, end: 20030801

REACTIONS (2)
  - DEMENTIA ALZHEIMER'S TYPE [None]
  - HAEMORRHAGIC STROKE [None]
